FAERS Safety Report 8274334-7 (Version None)
Quarter: 2012Q2

REPORT INFORMATION
  Report Type: 
  Country: None (occurrence: None)
  Receive Date: 20120411
  Receipt Date: 20120409
  Transmission Date: 20120825
  Serious: Yes (Other)
  Sender: FDA-Public Use
  Company Number: US-BAYER-200829316NA

PATIENT
  Sex: Male
  Weight: 86 kg

DRUGS (28)
  1. METOPROLOL TARTRATE [Concomitant]
     Dosage: UNK
     Dates: start: 20080101
  2. LYRICA [Concomitant]
     Dosage: UNK
     Dates: start: 20080101
  3. DEXAMETHASONE [Concomitant]
  4. MULTIHANCE [Suspect]
     Indication: NUCLEAR MAGNETIC RESONANCE IMAGING
  5. ACTONEL [Concomitant]
  6. MAGNEVIST [Suspect]
     Indication: NUCLEAR MAGNETIC RESONANCE IMAGING
     Dosage: 19 ML, ONCE
     Route: 042
     Dates: start: 20080721, end: 20080721
  7. TRIAMTEREN HCT [Concomitant]
  8. TAMSULOSIN HCL [Concomitant]
  9. MAGNEVIST [Suspect]
     Indication: ASTHENIA
  10. GADOLINIUM IN UNSPECIFIED DRUG [Suspect]
     Indication: NUCLEAR MAGNETIC RESONANCE IMAGING
     Dosage: UNK UNK, ONCE
     Dates: start: 20050521, end: 20050521
  11. GADOLINIUM IN UNSPECIFIED DRUG [Suspect]
     Indication: ANGIOGRAM
  12. OMEPRAZOLE [Concomitant]
  13. SIMVASTATIN [Concomitant]
  14. AMIODARONE HCL [Concomitant]
     Dosage: UNK
     Dates: start: 19980101
  15. MAGNEVIST [Suspect]
     Indication: NUCLEAR MAGNETIC RESONANCE IMAGING ABDOMINAL
  16. PROHANCE [Suspect]
     Indication: NUCLEAR MAGNETIC RESONANCE IMAGING
  17. IRON SULFATETHIAMIN COMPOUND TAB [Concomitant]
  18. GADOLINIUM IN UNSPECIFIED DRUG [Suspect]
     Indication: DIZZINESS
     Dosage: UNK
     Dates: start: 20061023, end: 20061023
  19. BENICAR [Concomitant]
     Dosage: UNK
     Dates: start: 19980101
  20. NORVASC [Concomitant]
     Dosage: UNK
     Dates: start: 19980101, end: 20070101
  21. HYDRALAZINE HCL [Concomitant]
  22. OMNISCAN [Suspect]
     Indication: NUCLEAR MAGNETIC RESONANCE IMAGING BRAIN
     Dosage: UNK, ONCE
     Dates: start: 20050811, end: 20050811
  23. OPTIMARK [Suspect]
     Indication: NUCLEAR MAGNETIC RESONANCE IMAGING
  24. WARFARIN SODIUM [Concomitant]
     Dosage: UNK
     Dates: start: 19980101
  25. METFORMIN HCL [Concomitant]
  26. SILODOSIN [Concomitant]
  27. COREG [Concomitant]
     Dosage: UNK
     Dates: start: 19980101
  28. POTASSIUM [Concomitant]

REACTIONS (13)
  - NEPHROGENIC SYSTEMIC FIBROSIS [None]
  - INJURY [None]
  - MOBILITY DECREASED [None]
  - RASH [None]
  - IMMOBILE [None]
  - ANXIETY [None]
  - GENERAL PHYSICAL HEALTH DETERIORATION [None]
  - PAIN [None]
  - EMOTIONAL DISTRESS [None]
  - MAJOR DEPRESSION [None]
  - SKIN DISORDER [None]
  - DISCOMFORT [None]
  - RENAL DISORDER [None]
